FAERS Safety Report 5557839-9 (Version None)
Quarter: 2007Q4

REPORT INFORMATION
  Report Type: 
  Country: None (occurrence: None)
  Receive Date: 20071214
  Receipt Date: 20071130
  Transmission Date: 20080405
  Serious: Yes (Other)
  Sender: FDA-Public Use
  Company Number: US-JNJFOC-20071203663

PATIENT
  Sex: Female
  Weight: 90.72 kg

DRUGS (3)
  1. FLEXERIL [Suspect]
     Indication: MUSCLE SPASMS
     Route: 048
  2. NEURONTIN [Concomitant]
     Indication: NEURALGIA
     Route: 048
  3. ZOLOFT [Concomitant]
     Indication: DEPRESSION
     Route: 048

REACTIONS (3)
  - COMPLEX REGIONAL PAIN SYNDROME [None]
  - INAPPROPRIATE SCHEDULE OF DRUG ADMINISTRATION [None]
  - PAIN IN EXTREMITY [None]
